FAERS Safety Report 9455520 (Version 1)
Quarter: 2013Q3

REPORT INFORMATION
  Report Type: Spontaneous
  Country: US (occurrence: US)
  Receive Date: 20130813
  Receipt Date: 20130813
  Transmission Date: 20140515
  Serious: Yes (Hospitalization, Other)
  Sender: FDA-Public Use
  Company Number: US-PFIZER INC-2013130086

PATIENT
  Age: 39 Year
  Sex: Male

DRUGS (4)
  1. DILANTIN [Suspect]
     Indication: CONVULSION
     Dosage: 400 MG, 3X/DAY (100MG FOUR CAPSULES EVERY 8 HOURS)
     Route: 048
     Dates: start: 20050805, end: 20050914
  2. LISINOPRIL [Concomitant]
     Dosage: 40 MG, 2X/DAY
     Dates: start: 20050801
  3. PEPCID [Concomitant]
     Dosage: UNK
     Dates: start: 20050801
  4. PERCOCET [Concomitant]
     Dosage: UNK
     Dates: start: 20050801

REACTIONS (2)
  - Stevens-Johnson syndrome [Unknown]
  - Toxic epidermal necrolysis [Unknown]
